FAERS Safety Report 10418413 (Version 1)
Quarter: 2014Q2

REPORT INFORMATION
  Report Type: Spontaneous
  Country: US (occurrence: None)
  Receive Date: 20140616
  Receipt Date: 20140616
  Transmission Date: 20141212
  Serious: Yes (Other)
  Sender: FDA-Public Use
  Company Number: 2013-003956

PATIENT
  Age: 68 Year
  Sex: Female

DRUGS (3)
  1. ACTONEL (RISEDRONATE SODIUM) TABLET, UNKMG [Suspect]
     Indication: OSTEOPOROSIS
     Route: 048
  2. FOSAMAX (ALENDRONATE SODIUM) [Suspect]
     Indication: OSTEOPOROSIS
     Route: 048
  3. BONIVA (IBANDRONATE SODIUM) [Suspect]
     Indication: OSTEOPOROSIS
     Dosage: DOSAGE/ FREQUNCY UNKNOWN, UNKNOWN

REACTIONS (2)
  - Femur fracture [None]
  - Pain [None]
